FAERS Safety Report 7631913-5 (Version None)
Quarter: 2011Q3

REPORT INFORMATION
  Report Type: 
  Country: None (occurrence: None)
  Receive Date: 20110725
  Receipt Date: 20110509
  Transmission Date: 20111222
  Serious: Yes (Hospitalization)
  Sender: FDA-Public Use
  Company Number: US-BRISTOL-MYERS SQUIBB COMPANY-15728389

PATIENT
  Age: 88 Year
  Sex: Male

DRUGS (1)
  1. COUMADIN [Suspect]

REACTIONS (5)
  - FALL [None]
  - PAIN [None]
  - INCREASED TENDENCY TO BRUISE [None]
  - HAEMORRHAGE [None]
  - PROTHROMBIN TIME PROLONGED [None]
